FAERS Safety Report 7278246-7 (Version None)
Quarter: 2011Q1

REPORT INFORMATION
  Report Type: 
  Country: None (occurrence: None)
  Receive Date: 20110202
  Receipt Date: 20110202
  Transmission Date: 20110831
  Serious: Yes (Hospitalization)
  Sender: FDA-Public Use
  Company Number: None

PATIENT
  Age: 86 Year
  Sex: Male
  Weight: 62 kg

DRUGS (17)
  1. WARFARIN SODIUM [Suspect]
     Indication: POSTOPERATIVE CARE
     Dosage: DAILY DOSE PER MD DAILY PO
     Route: 048
  2. WARFARIN SODIUM [Suspect]
     Indication: ANTICOAGULANT THERAPY
     Dosage: DAILY DOSE PER MD DAILY PO
     Route: 048
  3. WARFARIN SODIUM [Suspect]
     Indication: HIP SURGERY
     Dosage: DAILY DOSE PER MD DAILY PO
     Route: 048
  4. QUINAPRIL [Concomitant]
  5. DOROLAMIDE 2% [Concomitant]
  6. METOPROLOL [Concomitant]
  7. MULTI-VITAMIN [Concomitant]
  8. PRAVASTATIN [Concomitant]
  9. TERAZOSIN [Concomitant]
  10. IRON [Concomitant]
  11. AMLODIPINE [Concomitant]
  12. CALCIUM + VITAMIN D [Concomitant]
  13. DIGOXIN [Concomitant]
  14. ALENDRONATE [Concomitant]
  15. MEMANTADINE [Concomitant]
  16. BETAXOLOL [Concomitant]
  17. DONEPEZIL HCL [Concomitant]

REACTIONS (4)
  - GASTROINTESTINAL HAEMORRHAGE [None]
  - COAGULOPATHY [None]
  - INTERNATIONAL NORMALISED RATIO INCREASED [None]
  - ANAEMIA [None]
